FAERS Safety Report 24709788 (Version 1)
Quarter: 2024Q4

REPORT INFORMATION
  Report Type: Spontaneous
  Country: ES (occurrence: ES)
  Receive Date: 20241209
  Receipt Date: 20241209
  Transmission Date: 20250115
  Serious: Yes (Death, Other)
  Sender: CELLTRION
  Company Number: ES-CELLTRION INC.-2024ES030949

PATIENT

DRUGS (7)
  1. BEVACIZUMAB [Suspect]
     Active Substance: BEVACIZUMAB
     Indication: Glioblastoma
     Dosage: 7.5 MG/KG EVERY 15 DAYS THEN EVERY 21 DAYS
  2. REGORAFENIB [Concomitant]
     Active Substance: REGORAFENIB
     Indication: Glioblastoma
     Dosage: 160 MG/DAY FOR 21 DAYS OF A 28-DAY CYCLE
  3. REGORAFENIB [Concomitant]
     Active Substance: REGORAFENIB
     Dosage: 120 MG/DAY
  4. REGORAFENIB [Concomitant]
     Active Substance: REGORAFENIB
     Dosage: 80 MG/DAY
  5. REGORAFENIB [Concomitant]
     Active Substance: REGORAFENIB
     Dosage: 40 MG/DAY
  6. TEMOZOLOMIDE [Concomitant]
     Active Substance: TEMOZOLOMIDE
     Dosage: 75 MG/M2 FOR 6 TO 7 WEEKS
  7. TEMOZOLOMIDE [Concomitant]
     Active Substance: TEMOZOLOMIDE
     Dosage: 150 MG/M2, QD PER DAY FOR 5 DAYS EVERY 28 DAYS FOR UP TO SIX CYCLES

REACTIONS (4)
  - Cerebral haemorrhage [Fatal]
  - Toxicity to various agents [Fatal]
  - Therapy partial responder [Unknown]
  - Intentional product use issue [Unknown]
